FAERS Safety Report 6202695-9 (Version None)
Quarter: 2009Q2

REPORT INFORMATION
  Report Type: 
  Country: None (occurrence: None)
  Receive Date: 20090526
  Receipt Date: 20090515
  Transmission Date: 20091009
  Serious: Yes (Other)
  Sender: FDA-Public Use
  Company Number: PHHY2008BR30627

PATIENT
  Sex: Female
  Weight: 55 kg

DRUGS (5)
  1. EXELON [Suspect]
     Indication: DEMENTIA ALZHEIMER'S TYPE
     Dosage: 3 MG, UNK
     Route: 048
  2. EXELON [Suspect]
     Dosage: 1.5 MG, BID
     Route: 048
     Dates: start: 20080101
  3. ADALAT [Concomitant]
     Indication: HYPERTENSION
     Dosage: 20 MG, QD
     Route: 048
  4. MUVINLAX [Concomitant]
     Indication: CONSTIPATION
     Dosage: UNK
     Route: 048
  5. AAS [Concomitant]
     Dosage: UNK

REACTIONS (13)
  - APHASIA [None]
  - BURNING SENSATION [None]
  - DAYDREAMING [None]
  - DIZZINESS [None]
  - DYSPNOEA [None]
  - FATIGUE [None]
  - FEAR [None]
  - INSOMNIA [None]
  - MEMORY IMPAIRMENT [None]
  - PALPITATIONS [None]
  - SCREAMING [None]
  - SPEECH DISORDER [None]
  - TREMOR [None]
